FAERS Safety Report 5692903-5 (Version None)
Quarter: 2008Q2

REPORT INFORMATION
  Report Type: 
  Country: None (occurrence: None)
  Receive Date: 20080327
  Receipt Date: 20080228
  Transmission Date: 20081010
  Serious: Yes (Other)
  Sender: FDA-Public Use
  Company Number: A03200800793

PATIENT
  Age: 54 Year
  Sex: Male

DRUGS (2)
  1. AMBIEN CR [Suspect]
     Indication: INSOMNIA
     Dosage: ORAL
     Route: 048
     Dates: start: 20080120, end: 20080223
  2. METOPROLOL SUCCINATE [Concomitant]

REACTIONS (3)
  - ANOREXIA [None]
  - NERVOUSNESS [None]
  - PANIC ATTACK [None]
